FAERS Safety Report 13389530 (Version 2)
Quarter: 2017Q2

REPORT INFORMATION
  Report Type: Report from Study
  Country: CA (occurrence: CA)
  Receive Date: 20170330
  Receipt Date: 20170419
  Transmission Date: 20170830
  Serious: Yes (Other)
  Sender: FDA-Public Use
  Company Number: CA-JNJFOC-20170321735

PATIENT
  Age: 71 Year
  Sex: Female
  Weight: 65.1 kg

DRUGS (10)
  1. DIFLUCAN [Concomitant]
     Active Substance: FLUCONAZOLE
     Route: 065
  2. PANTOPRAZOLE [Concomitant]
     Active Substance: PANTOPRAZOLE
     Route: 048
  3. REMICADE [Suspect]
     Active Substance: INFLIXIMAB
     Indication: COLITIS ULCERATIVE
     Route: 042
     Dates: start: 20170309
  4. ROSUVASTATINE [Concomitant]
     Active Substance: ROSUVASTATIN
     Route: 048
  5. REMICADE [Suspect]
     Active Substance: INFLIXIMAB
     Indication: COLITIS ULCERATIVE
     Route: 042
     Dates: start: 20170411
  6. BISOPROLOL [Concomitant]
     Active Substance: BISOPROLOL
     Route: 048
  7. REMICADE [Suspect]
     Active Substance: INFLIXIMAB
     Indication: COLITIS ULCERATIVE
     Route: 042
     Dates: start: 20160114
  8. REMICADE [Suspect]
     Active Substance: INFLIXIMAB
     Indication: COLITIS ULCERATIVE
     Route: 042
     Dates: start: 20170327
  9. ASAPHEN [Concomitant]
     Active Substance: ASPIRIN
     Route: 048
  10. MESALAZINE [Concomitant]
     Active Substance: MESALAMINE
     Route: 065

REACTIONS (8)
  - Loss of consciousness [Recovered/Resolved]
  - Infusion related reaction [Unknown]
  - Facial pain [Unknown]
  - Hypoaesthesia [Unknown]
  - Haematochezia [Unknown]
  - Frequent bowel movements [Unknown]
  - Neuralgia [Unknown]
  - Headache [Unknown]

NARRATIVE: CASE EVENT DATE: 20170317
